FAERS Safety Report 18327164 (Version 1)
Quarter: 2020Q3

REPORT INFORMATION
  Report Type: Spontaneous
  Country: FR (occurrence: FR)
  Receive Date: 20200929
  Receipt Date: 20200929
  Transmission Date: 20201103
  Serious: Yes (Hospitalization, Other)
  Sender: FDA-Public Use
  Company Number: FR-PFM-2020-19214

PATIENT

DRUGS (1)
  1. PROPRANOLOL [Suspect]
     Active Substance: PROPRANOLOL HYDROCHLORIDE
     Indication: INTENTIONAL OVERDOSE
     Dosage: IN TOTAL: 4000 MG
     Route: 048
     Dates: start: 20200809, end: 20200809

REACTIONS (6)
  - Overdose [Unknown]
  - Poisoning deliberate [Recovered/Resolved]
  - Off label use [Unknown]
  - Bradycardia [Recovered/Resolved]
  - Cardiac failure [Recovered/Resolved]
  - Product use issue [Unknown]

NARRATIVE: CASE EVENT DATE: 20200809
